FAERS Safety Report 5596633-X (Version None)
Quarter: 2008Q1

REPORT INFORMATION
  Report Type: 
  Country: None (occurrence: None)
  Receive Date: 20080118
  Receipt Date: 20080109
  Transmission Date: 20080703
  Serious: Yes (Other)
  Sender: FDA-Public Use
  Company Number: FR-PFIZER INC-2007105337

PATIENT
  Age: 62 Year
  Sex: Male
  Weight: 90 kg

DRUGS (4)
  1. ALDACTONE [Suspect]
     Indication: HYPERTENSION
     Route: 048
  2. VERAPAMIL [Interacting]
     Indication: HYPERTENSION
     Route: 048
     Dates: start: 19980901, end: 20071202
  3. KARDEGIC [Concomitant]
     Indication: HYPERTENSION
     Route: 048
  4. RILMENIDINE DIHYDROGEN PHOSPHATE [Concomitant]
     Indication: HYPERTENSION
     Route: 048
     Dates: start: 20060601, end: 20071001

REACTIONS (4)
  - DRUG INTERACTION [None]
  - POLYNEUROPATHY [None]
  - VITAMIN B1 DEFICIENCY [None]
  - VITAMIN B6 DEFICIENCY [None]
